FAERS Safety Report 6020523-1 (Version None)
Quarter: 2008Q4

REPORT INFORMATION
  Report Type: 
  Country: None (occurrence: None)
  Receive Date: 20081226
  Receipt Date: 20081216
  Transmission Date: 20090506
  Serious: Yes (Other)
  Sender: FDA-Public Use
  Company Number: CA-ABBOTT-08P-028-0491175-00

PATIENT
  Sex: Male
  Weight: 81.72 kg

DRUGS (10)
  1. KALETRA [Suspect]
     Indication: HIV INFECTION
     Dosage: 266/66MG, TWICE DAILY
     Route: 048
  2. KALETRA [Suspect]
     Indication: HIV INFECTION
     Dosage: 400/100MG, TWICE DAILY
  3. UNKNOWN ANTIRETROVIRAL THERAPY [Suspect]
     Indication: HIV INFECTION
     Route: 048
  4. UNKNOWN ANTIRETROVIRAL THERAPY [Suspect]
     Indication: DRUG USE FOR UNKNOWN INDICATION
  5. DIOVAN [Concomitant]
     Indication: DRUG USE FOR UNKNOWN INDICATION
     Dosage: 80 MG DAILY
     Route: 048
  6. LYRICA [Concomitant]
     Indication: DRUG USE FOR UNKNOWN INDICATION
     Dosage: 50 MG DAILY
     Route: 048
  7. NOVOTRIMEL [Concomitant]
     Indication: DRUG USE FOR UNKNOWN INDICATION
     Dosage: DAILY
     Route: 048
  8. RISPERDAL [Concomitant]
     Indication: DRUG USE FOR UNKNOWN INDICATION
     Dosage: 2 MG DAILY
     Route: 048
  9. RIVA-D 400 UP [Concomitant]
     Indication: DRUG USE FOR UNKNOWN INDICATION
     Dosage: DAILY
     Route: 048
  10. TRUVADA [Concomitant]
     Indication: DRUG USE FOR UNKNOWN INDICATION
     Dosage: 200 MG DAILY
     Route: 048

REACTIONS (1)
  - RENAL IMPAIRMENT [None]
